FAERS Safety Report 19935338 (Version 1)
Quarter: 2021Q4

REPORT INFORMATION
  Report Type: Spontaneous
  Country: US (occurrence: US)
  Receive Date: 20211009
  Receipt Date: 20211009
  Transmission Date: 20220303
  Serious: No
  Sender: FDA-Public Use
  Company Number: US-JNJFOC-20211011188

PATIENT

DRUGS (1)
  1. MOTRIN [Suspect]
     Active Substance: IBUPROFEN
     Indication: Product used for unknown indication
     Dosage: 2500 MG OF MOTRIN FOR THE PAST FEW DAYS
     Route: 065

REACTIONS (8)
  - Somnolence [Not Recovered/Not Resolved]
  - Weight increased [Unknown]
  - Flatulence [Unknown]
  - Anal incontinence [Unknown]
  - Headache [Unknown]
  - Pain in extremity [Unknown]
  - Tension [Unknown]
  - Overdose [Unknown]
